FAERS Safety Report 5056708-0 (Version None)
Quarter: 2006Q2

REPORT INFORMATION
  Report Type: 
  Country: None (occurrence: None)
  Receive Date: 20060616
  Receipt Date: 20060315
  Transmission Date: 20061013
  Serious: No
  Sender: FDA-Public Use
  Company Number: 2006US000584

PATIENT
  Age: 85 Year
  Sex: Male

DRUGS (8)
  1. VESICARE [Suspect]
     Indication: HYPERTONIC BLADDER
     Dosage: 5 MG, UID/QD, ORAL
     Route: 048
     Dates: start: 20060101
  2. PREVACID [Concomitant]
  3. CALCIUM (CALCIUM) [Concomitant]
  4. CENTRUM SILVER (ASCORBIC ACID, RETINOL, TOCOPHERYL ACETATE, ZINC, VITA [Concomitant]
  5. ASPIRIN [Concomitant]
  6. ACETAMINOPHEN [Concomitant]
  7. REMERON [Concomitant]
  8. ZOCOR [Concomitant]

REACTIONS (2)
  - CONSTIPATION [None]
  - DRUG INEFFECTIVE [None]
